FAERS Safety Report 6824096-2 (Version None)
Quarter: 2010Q3

REPORT INFORMATION
  Report Type: 
  Country: None (occurrence: None)
  Receive Date: 20100708
  Receipt Date: 20061005
  Transmission Date: 20110219
  Serious: No
  Sender: FDA-Public Use
  Company Number: US-PFIZER INC-2006125536

PATIENT
  Sex: Female
  Weight: 47.63 kg

DRUGS (5)
  1. CHANTIX [Suspect]
     Indication: SMOKING CESSATION THERAPY
     Dates: start: 20060901
  2. BENICAR [Concomitant]
  3. SPIRIVA [Concomitant]
  4. ASPIRIN [Concomitant]
  5. IBANDRONATE SODIUM [Concomitant]

REACTIONS (8)
  - ABDOMINAL DISTENSION [None]
  - ABNORMAL DREAMS [None]
  - DRY MOUTH [None]
  - FATIGUE [None]
  - LETHARGY [None]
  - SOMNOLENCE [None]
  - TERMINAL INSOMNIA [None]
  - THIRST [None]
